FAERS Safety Report 4700523-1 (Version None)
Quarter: 2005Q2

REPORT INFORMATION
  Report Type: 
  Country: None (occurrence: None)
  Receive Date: 20050627
  Receipt Date: 20050627
  Transmission Date: 20051028
  Serious: No
  Sender: FDA-Public Use
  Company Number: None

PATIENT
  Sex: Male
  Weight: 88.4514 kg

DRUGS (1)
  1. PRINIVIL [Suspect]
     Indication: HYPERTENSION
     Dosage: ONE TAB     TWICE DAILY
     Dates: start: 20000401, end: 20050513

REACTIONS (7)
  - ANXIETY [None]
  - DEPRESSION [None]
  - HEADACHE [None]
  - NEUROPATHY [None]
  - PERSONALITY CHANGE [None]
  - SPEECH DISORDER [None]
  - TINNITUS [None]
